FAERS Safety Report 9943930 (Version 3)
Quarter: 2015Q3

REPORT INFORMATION
  Report Type: Spontaneous
  Country: US (occurrence: US)
  Receive Date: 20140303
  Receipt Date: 20150730
  Transmission Date: 20151125
  Serious: No
  Sender: FDA-Public Use
  Company Number: US-GILEAD-2012-0050621

PATIENT
  Age: 92 Year
  Sex: Female

DRUGS (2)
  1. ALTACE [Concomitant]
     Active Substance: RAMIPRIL
  2. RANEXA [Suspect]
     Active Substance: RANOLAZINE
     Indication: PRODUCT USED FOR UNKNOWN INDICATION
     Dosage: 500 MG, UNK
     Route: 048
     Dates: start: 20120125

REACTIONS (1)
  - Blood creatinine increased [Unknown]
